FAERS Safety Report 22049063 (Version 5)
Quarter: 2023Q2

REPORT INFORMATION
  Report Type: Spontaneous
  Country: US (occurrence: US)
  Receive Date: 20230301
  Receipt Date: 20230629
  Transmission Date: 20230722
  Serious: Yes (Other)
  Sender: FDA-Public Use
  Company Number: US-PFIZER INC-PV202300038318

PATIENT
  Age: 67 Year
  Sex: Male

DRUGS (2)
  1. INLYTA [Suspect]
     Active Substance: AXITINIB
     Indication: Renal cancer
     Dosage: 5 MG
  2. KEYTRUDA [Suspect]
     Active Substance: PEMBROLIZUMAB
     Dosage: UNK

REACTIONS (11)
  - Weight decreased [Unknown]
  - Nausea [Unknown]
  - Vomiting [Unknown]
  - Pruritus [Recovered/Resolved]
  - Tongue discomfort [Unknown]
  - Decreased appetite [Unknown]
  - Taste disorder [Unknown]
  - Illness [Recovered/Resolved]
  - Diarrhoea [Unknown]
  - Constipation [Unknown]
  - Pain [Unknown]
